FAERS Safety Report 21894327 (Version 1)
Quarter: 2023Q1

REPORT INFORMATION
  Report Type: Spontaneous
  Country: FR (occurrence: FR)
  Receive Date: 20230121
  Receipt Date: 20230121
  Transmission Date: 20230418
  Serious: Yes (Other)
  Sender: FDA-Public Use
  Company Number: FR-AFSSAPS-AN2023000010

PATIENT
  Age: 61 Year
  Sex: Female

DRUGS (5)
  1. LINEZOLID [Suspect]
     Active Substance: LINEZOLID
     Indication: Abscess
     Dosage: 600 MILLIGRAM, TWO TIMES A DAY
     Route: 048
     Dates: start: 20220830, end: 20220930
  2. CILASTATIN [Suspect]
     Active Substance: CILASTATIN
     Indication: Abscess
     Dosage: 1 GRAM, 3 TIMES A DAY
     Route: 042
     Dates: start: 20220912, end: 20221003
  3. IMIPENEM [Suspect]
     Active Substance: IMIPENEM
     Indication: Abscess
     Dosage: 1 GRAM, 3 TIMES A DAY
     Route: 042
     Dates: start: 20220912, end: 20221003
  4. LOVENOX [Suspect]
     Active Substance: ENOXAPARIN SODIUM
     Indication: Thrombosis prophylaxis
     Dosage: 1 DOSAGE FORM, ONCE A DAY
     Route: 058
     Dates: start: 20220812
  5. ZOPICLONE [Concomitant]
     Active Substance: ZOPICLONE
     Indication: Product used for unknown indication
     Dosage: 7.5 MILLIGRAM, ONCE A DAY
     Route: 048
     Dates: start: 20220829, end: 20220923

REACTIONS (1)
  - Hepatic cytolysis [Recovered/Resolved]

NARRATIVE: CASE EVENT DATE: 20220919
